FAERS Safety Report 4346428-X (Version None)
Quarter: 2004Q1

REPORT INFORMATION
  Report Type: 
  Country: None (occurrence: None)
  Receive Date: 20040325
  Receipt Date: 20040106
  Transmission Date: 20041129
  Serious: No
  Sender: FDA-Public Use
  Company Number: USA031255257

PATIENT
  Age: 75 Year
  Sex: Female
  Weight: 51 kg

DRUGS (4)
  1. FORTEO [Suspect]
     Indication: OSTEOPOROSIS
     Dosage: 20 UG/DAY
     Dates: start: 20031207, end: 20031223
  2. CALCIUM [Concomitant]
  3. VITAMIN D [Concomitant]
  4. ALLERGY SHOT [Concomitant]

REACTIONS (12)
  - ASTHENIA [None]
  - DRUG HYPERSENSITIVITY [None]
  - EAR DISORDER [None]
  - ERYTHEMA [None]
  - EUSTACHIAN TUBE DISORDER [None]
  - INJECTION SITE ERYTHEMA [None]
  - INTESTINAL FUNCTIONAL DISORDER [None]
  - MUSCULAR WEAKNESS [None]
  - PROCTALGIA [None]
  - RASH [None]
  - RECTAL HAEMORRHAGE [None]
  - TINNITUS [None]
